FAERS Safety Report 24802930 (Version 1)
Quarter: 2025Q1

REPORT INFORMATION
  Report Type: Report from Study
  Country: US (occurrence: US)
  Receive Date: 20250103
  Receipt Date: 20250103
  Transmission Date: 20250408
  Serious: Yes (Hospitalization)
  Sender: TAKEDA
  Company Number: US-TAKEDA-2024TUS053741

PATIENT
  Age: 15 Year
  Sex: Female

DRUGS (4)
  1. LANADELUMAB [Suspect]
     Active Substance: LANADELUMAB
     Indication: Immune system disorder
     Dosage: 300 MILLIGRAM, Q2WEEKS
     Dates: start: 20240521
  2. LANADELUMAB [Suspect]
     Active Substance: LANADELUMAB
     Dosage: 300 MILLIGRAM, Q2WEEKS
     Dates: start: 202405
  3. LANADELUMAB [Suspect]
     Active Substance: LANADELUMAB
  4. ICATIBANT ACETATE [Concomitant]
     Active Substance: ICATIBANT ACETATE

REACTIONS (5)
  - Endoscopy [Unknown]
  - Weight decreased [Unknown]
  - Headache [Unknown]
  - Hereditary angioedema [Recovered/Resolved]
  - Injection site pain [Not Recovered/Not Resolved]

NARRATIVE: CASE EVENT DATE: 20240527
